FAERS Safety Report 6390984-7 (Version None)
Quarter: 2009Q4

REPORT INFORMATION
  Report Type: 
  Country: None (occurrence: None)
  Receive Date: 20091006
  Receipt Date: 20090925
  Transmission Date: 20100525
  Serious: Yes (Other)
  Sender: FDA-Public Use
  Company Number: US-ELI_LILLY_AND_COMPANY-US200907003742

PATIENT
  Sex: Female
  Weight: 103.86 kg

DRUGS (11)
  1. ZYPREXA [Suspect]
     Indication: INSOMNIA
     Dosage: 10 MG, UNK
     Dates: start: 20090401, end: 20090401
  2. CYMBALTA [Suspect]
     Dosage: 60 MG, UNK
     Route: 048
  3. ZOLPIDEM [Concomitant]
     Dosage: 10 MG, UNK
     Route: 048
  4. BUSPIRONE HCL [Concomitant]
     Dosage: 15 MG, UNK
     Route: 048
  5. VALSARTAN [Concomitant]
     Dosage: 160 MG, UNK
     Route: 048
  6. ESTRADIOL [Concomitant]
     Dosage: 2 MG, UNK
     Route: 048
  7. WARFARIN [Concomitant]
     Dosage: 5 MG, UNK
     Route: 048
  8. CARISOPRODOL [Concomitant]
     Dosage: 350 MG, UNK
     Route: 048
  9. VITAMIN D [Concomitant]
     Dosage: 50000 U, UNK
     Route: 048
  10. IBUPROFEN [Concomitant]
     Dosage: 200 MG, UNK
     Route: 048
  11. RANITIDINE [Concomitant]
     Dosage: 150 MG, UNK
     Route: 048

REACTIONS (5)
  - ABNORMAL BEHAVIOUR [None]
  - AMNESIA [None]
  - CONFUSIONAL STATE [None]
  - OFF LABEL USE [None]
  - ROAD TRAFFIC ACCIDENT [None]
